FAERS Safety Report 6104885-2 (Version None)
Quarter: 2009Q1

REPORT INFORMATION
  Report Type: 
  Country: None (occurrence: None)
  Receive Date: 20090304
  Receipt Date: 20090217
  Transmission Date: 20090719
  Serious: Yes (Other)
  Sender: FDA-Public Use
  Company Number: 231770K09USA

PATIENT
  Sex: Male

DRUGS (4)
  1. REBIF [Suspect]
     Indication: MULTIPLE SCLEROSIS
     Dosage: 44 MCG, 3 IN 1 WEEKS, SUBCUTANEOUS
     Route: 058
     Dates: start: 20040417
  2. WELLBUTRIN [Concomitant]
  3. PRILOSEC [Concomitant]
  4. SIMVASTATIN [Concomitant]

REACTIONS (7)
  - CYST [None]
  - HEADACHE [None]
  - HYPOGONADISM [None]
  - INSOMNIA [None]
  - SENSATION OF PRESSURE [None]
  - SINUS POLYP [None]
  - SINUSITIS [None]
